FAERS Safety Report 4379725-2 (Version None)
Quarter: 2004Q2

REPORT INFORMATION
  Report Type: 
  Country: None (occurrence: None)
  Receive Date: 20040617
  Receipt Date: 20030514
  Transmission Date: 20050107
  Serious: Yes (Death)
  Sender: FDA-Public Use
  Company Number: GB-GLAXOSMITHKLINE-B0299859A

PATIENT
  Age: 19 Year
  Sex: Male

DRUGS (1)
  1. SEROXAT [Suspect]
     Indication: DEPRESSION
     Route: 048
     Dates: start: 20010101

REACTIONS (11)
  - ABNORMAL DREAMS [None]
  - AGITATION [None]
  - COMPLETED SUICIDE [None]
  - CONFUSIONAL STATE [None]
  - ELEVATED MOOD [None]
  - FEELING JITTERY [None]
  - HOMICIDAL IDEATION [None]
  - INSOMNIA [None]
  - PERSONALITY CHANGE [None]
  - SEXUAL DYSFUNCTION [None]
  - SOCIAL AVOIDANT BEHAVIOUR [None]
